FAERS Safety Report 5842073-5 (Version None)
Quarter: 2008Q3

REPORT INFORMATION
  Report Type: 
  Country: None (occurrence: None)
  Receive Date: 20080812
  Receipt Date: 20080731
  Transmission Date: 20090109
  Serious: Yes (Death)
  Sender: FDA-Public Use
  Company Number: JP-ROCHE-577112

PATIENT
  Sex: Female
  Weight: 47 kg

DRUGS (7)
  1. PEGASYS [Suspect]
     Indication: HEPATITIS C
     Route: 058
     Dates: start: 20060223, end: 20060223
  2. PEGASYS [Suspect]
     Route: 058
     Dates: start: 20060302, end: 20060302
  3. PEGASYS [Suspect]
     Route: 058
     Dates: start: 20060316, end: 20071026
  4. PEGASYS [Suspect]
     Route: 058
     Dates: start: 20071108, end: 20071130
  5. PEGASYS [Suspect]
     Route: 058
     Dates: start: 20071212
  6. BEPRICOR [Concomitant]
     Route: 048
     Dates: end: 20080718
  7. WARFARIN SODIUM [Concomitant]
     Route: 048
     Dates: end: 20080718

REACTIONS (1)
  - THROMBOTIC THROMBOCYTOPENIC PURPURA [None]
